FAERS Safety Report 4322901-5 (Version None)
Quarter: 2004Q1

REPORT INFORMATION
  Report Type: 
  Country: None (occurrence: None)
  Receive Date: 20040324
  Receipt Date: 20040318
  Transmission Date: 20041129
  Serious: Yes (Disabling)
  Sender: FDA-Public Use
  Company Number: WAES 0403NLD00021

PATIENT
  Age: 64 Year
  Sex: Male

DRUGS (5)
  1. ACETAMINOPHEN AND CODEINE [Concomitant]
     Route: 048
  2. CLEMASTINE FUMARATE [Concomitant]
     Route: 048
     Dates: start: 20030627, end: 20030702
  3. FEXOFENADINE HYDROCHLORIDE [Concomitant]
     Route: 048
     Dates: start: 20030805, end: 20030820
  4. METOPROLOL TARTRATE [Concomitant]
     Route: 048
  5. VIOXX [Suspect]
     Indication: LIMB INJURY
     Route: 048
     Dates: start: 20030603, end: 20030826

REACTIONS (3)
  - MACULOPATHY [None]
  - RETINAL PIGMENT EPITHELIOPATHY [None]
  - VISUAL ACUITY REDUCED [None]
